FAERS Safety Report 18126183 (Version 2)
Quarter: 2020Q3

REPORT INFORMATION
  Report Type: Spontaneous
  Country: GB (occurrence: GB)
  Receive Date: 20200808
  Receipt Date: 20200811
  Transmission Date: 20201103
  Serious: Yes (Hospitalization, Other)
  Sender: FDA-Public Use
  Company Number: GB-TAKEDA-2020TUS033881

PATIENT
  Age: 75 Year
  Sex: Male

DRUGS (1)
  1. VELCADE [Suspect]
     Active Substance: BORTEZOMIB
     Indication: PLASMA CELL LEUKAEMIA
     Dosage: 3.5 MILLIGRAM
     Route: 065

REACTIONS (3)
  - Drug ineffective [Unknown]
  - Cardiac disorder [Unknown]
  - Plasma cell leukaemia [Unknown]
